FAERS Safety Report 16636098 (Version 1)
Quarter: 2019Q3

REPORT INFORMATION
  Report Type: Spontaneous
  Country: US (occurrence: US)
  Receive Date: 20190726
  Receipt Date: 20190726
  Transmission Date: 20191004
  Serious: No
  Sender: FDA-Public Use
  Company Number: US-PFIZER INC-2018202889

PATIENT
  Age: 76 Year
  Sex: Female
  Weight: 75 kg

DRUGS (1)
  1. IBRANCE [Suspect]
     Active Substance: PALBOCICLIB
     Indication: BREAST CANCER METASTATIC
     Dosage: 75 MG, CYCLIC, (ONCE A DAY BY MOUTH FOR 21 DAYS THE OFF FOR 7 DAYS)
     Route: 048
     Dates: start: 201812

REACTIONS (1)
  - Neoplasm progression [Unknown]
